FAERS Safety Report 12521456 (Version 2)
Quarter: 2016Q4

REPORT INFORMATION
  Report Type: Report from Study
  Country: ES (occurrence: ES)
  Receive Date: 20160701
  Receipt Date: 20161005
  Transmission Date: 20170207
  Serious: Yes (Hospitalization)
  Sender: FDA-Public Use
  Company Number: ES-ROCHE-1785368

PATIENT
  Age: 70 Year
  Sex: Male

DRUGS (2)
  1. BENDAMUSTINE [Suspect]
     Active Substance: BENDAMUSTINE
     Indication: CHRONIC LYMPHOCYTIC LEUKAEMIA
     Dosage: THE DATE OF LAST DOSE PRIOR TO SAE IS 12/MAY/2016.?FREQUENCY: ON DAYS 2 AND 3 OF CYCLE 1 AND ON DAYS
     Route: 042
     Dates: start: 20151126
  2. OBINUTUZUMAB [Suspect]
     Active Substance: OBINUTUZUMAB
     Indication: CHRONIC LYMPHOCYTIC LEUKAEMIA
     Dosage: THE DATE OF LAST DOSE PRIOR TO SAE IS 11/MAY/2016.?FREQUENCY: ON DAYS 1, 8, AND 15 OF CYCLE 1 AND ON
     Route: 042
     Dates: start: 20151125

REACTIONS (1)
  - Febrile neutropenia [Recovered/Resolved]

NARRATIVE: CASE EVENT DATE: 20160621
